FAERS Safety Report 23118924 (Version 2)
Quarter: 2023Q4

REPORT INFORMATION
  Report Type: Report from Study
  Country: GB (occurrence: GB)
  Receive Date: 20231028
  Receipt Date: 20231109
  Transmission Date: 20240110
  Serious: Yes (Hospitalization)
  Sender: FDA-Public Use
  Company Number: GB-Accord-386666

PATIENT
  Age: 87 Year
  Sex: Male

DRUGS (1)
  1. PIRFENIDONE [Suspect]
     Active Substance: PIRFENIDONE
     Indication: Product used for unknown indication
     Dosage: FREQUENCY: 9 PER DAY
     Dates: start: 202301

REACTIONS (1)
  - Lower respiratory tract infection [Unknown]
